FAERS Safety Report 18360717 (Version 1)
Quarter: 2020Q4

REPORT INFORMATION
  Report Type: Spontaneous
  Country: GB (occurrence: GB)
  Receive Date: 20201008
  Receipt Date: 20201008
  Transmission Date: 20210114
  Serious: Yes (Hospitalization)
  Sender: FDA-Public Use
  Company Number: GB-ACCORD-204405

PATIENT
  Age: 91 Year
  Sex: Male
  Weight: 98 kg

DRUGS (4)
  1. AMLODIPINE [Suspect]
     Active Substance: AMLODIPINE BESYLATE
     Indication: HYPERTENSION
     Route: 048
     Dates: start: 20200831
  2. RANOLAZINE/RANOLAZINE HYDROCHLORIDE [Concomitant]
     Active Substance: RANOLAZINE HYDROCHLORIDE
  3. SIMVASTATIN. [Concomitant]
     Active Substance: SIMVASTATIN
  4. EPROSARTAN/EPROSARTAN MESILATE [Concomitant]
     Active Substance: EPROSARTAN MESYLATE

REACTIONS (1)
  - Angina pectoris [Not Recovered/Not Resolved]

NARRATIVE: CASE EVENT DATE: 20200914
